FAERS Safety Report 8115872-7 (Version None)
Quarter: 2012Q1

REPORT INFORMATION
  Report Type: 
  Country: None (occurrence: None)
  Receive Date: 20120206
  Receipt Date: 20120201
  Transmission Date: 20120608
  Serious: Yes (Life-Threatening)
  Sender: FDA-Public Use
  Company Number: VE-ABBOTT-11P-178-0866446-00

PATIENT
  Sex: Male
  Weight: 76 kg

DRUGS (3)
  1. METHOTREXATE [Concomitant]
     Indication: ANKYLOSING SPONDYLITIS
  2. HUMIRA [Suspect]
     Indication: ANKYLOSING SPONDYLITIS
     Route: 058
     Dates: start: 20091001, end: 20110801
  3. HUMIRA [Suspect]
     Route: 058
     Dates: start: 20120127

REACTIONS (1)
  - TUBERCULIN TEST POSITIVE [None]
